FAERS Safety Report 5335972-4 (Version None)
Quarter: 2007Q1

REPORT INFORMATION
  Report Type: 
  Country: None (occurrence: None)
  Receive Date: 20070305
  Receipt Date: 20060531
  Transmission Date: 20070707
  Serious: Yes (Other)
  Sender: FDA-Public Use
  Company Number: USPFP-S-20060002

PATIENT
  Age: 46 Year
  Sex: Female

DRUGS (5)
  1. NAVELBINE [Suspect]
     Indication: BREAST CANCER
     Dates: start: 20060309, end: 20060309
  2. HERCEPTIN [Suspect]
     Indication: BREAST CANCER
     Dates: start: 20060309
  3. HERCEPTIN [Concomitant]
  4. ALOXI [Concomitant]
  5. MULTI-VITAMIN [Concomitant]

REACTIONS (5)
  - BURNING SENSATION [None]
  - EAR PAIN [None]
  - GLOSSODYNIA [None]
  - PAIN IN JAW [None]
  - THROAT IRRITATION [None]
